FAERS Safety Report 21217869 (Version 1)
Quarter: 2022Q3

REPORT INFORMATION
  Report Type: Spontaneous
  Country: US (occurrence: US)
  Receive Date: 20220816
  Receipt Date: 20220816
  Transmission Date: 20221027
  Serious: Yes (Death, Other)
  Sender: FDA-Public Use
  Company Number: US-BRISTOL-MYERS SQUIBB COMPANY-2022-089212

PATIENT
  Age: 88 Year
  Sex: Male

DRUGS (6)
  1. ELIQUIS [Suspect]
     Active Substance: APIXABAN
     Indication: Product used for unknown indication
     Dosage: DOSE : 2.5MG;     FREQ : ^TAKE 1 TABLET  TWICE DAILY.^
     Route: 048
  2. ATORVASTATIN [Concomitant]
     Active Substance: ATORVASTATIN
  3. CLOPIDOGREL [Concomitant]
     Active Substance: CLOPIDOGREL BISULFATE
  4. FINASTERIDE [Concomitant]
     Active Substance: FINASTERIDE
  5. HUMULIN NOS [Concomitant]
     Active Substance: INSULIN HUMAN
  6. BUMETANIDE [Concomitant]
     Active Substance: BUMETANIDE

REACTIONS (1)
  - Pneumonia [Fatal]

NARRATIVE: CASE EVENT DATE: 20220804
